FAERS Safety Report 5103634-4 (Version None)
Quarter: 2006Q3

REPORT INFORMATION
  Report Type: 
  Country: None (occurrence: None)
  Receive Date: 20060913
  Receipt Date: 20060904
  Transmission Date: 20061208
  Serious: Yes (Hospitalization, Disabling)
  Sender: FDA-Public Use
  Company Number: JP-JNJFOC-20060303141

PATIENT
  Age: 28 Year
  Sex: Female

DRUGS (2)
  1. OFLOXACIN [Suspect]
     Indication: PELVIC INFECTION
     Route: 048
     Dates: start: 20060204, end: 20060214
  2. METRONIDAZOLE [Suspect]
     Indication: PELVIC INFECTION
     Route: 048
     Dates: start: 20060204, end: 20060214

REACTIONS (7)
  - ANOREXIA [None]
  - ARTHRALGIA [None]
  - HEART RATE INCREASED [None]
  - HYPOAESTHESIA [None]
  - JOINT SWELLING [None]
  - NAUSEA [None]
  - PALPITATIONS [None]
